FAERS Safety Report 12716162 (Version 8)
Quarter: 2019Q3

REPORT INFORMATION
  Report Type: Report from Study
  Country: PA (occurrence: PA)
  Receive Date: 20160906
  Receipt Date: 20190717
  Transmission Date: 20191004
  Serious: Yes (Other)
  Sender: FDA-Public Use
  Company Number: PHHY2016PA120000

PATIENT
  Sex: Male
  Weight: 89 kg

DRUGS (5)
  1. SANDOSTATIN LAR DEPOT [Suspect]
     Active Substance: OCTREOTIDE ACETATE
     Dosage: 20 MG, UNK
     Route: 065
     Dates: end: 201805
  2. SANDOSTATIN LAR DEPOT [Suspect]
     Active Substance: OCTREOTIDE ACETATE
     Dosage: 2 X 20 MG SIMULTANEOUSLY
     Route: 065
  3. LISINOPRIL. [Suspect]
     Active Substance: LISINOPRIL
     Indication: PRODUCT USED FOR UNKNOWN INDICATION
     Dosage: UNK
     Route: 065
  4. SANDOSTATIN LAR DEPOT [Suspect]
     Active Substance: OCTREOTIDE ACETATE
     Indication: BRAIN NEOPLASM
     Dosage: 20 MG, UNK
     Route: 065
  5. INSULIN [Concomitant]
     Active Substance: INSULIN NOS
     Indication: DIABETES MELLITUS
     Route: 065

REACTIONS (11)
  - Tension headache [Recovering/Resolving]
  - Blindness unilateral [Unknown]
  - Dizziness [Unknown]
  - Blood glucose decreased [Unknown]
  - Pterygium [Unknown]
  - Product use in unapproved indication [Unknown]
  - Feeling drunk [Unknown]
  - Injection site pain [Unknown]
  - Malaise [Recovered/Resolved]
  - Blood glucose increased [Unknown]
  - Visual acuity reduced [Unknown]
